FAERS Safety Report 22338923 (Version 1)
Quarter: 2023Q2

REPORT INFORMATION
  Report Type: Report from Study
  Country: US (occurrence: US)
  Receive Date: 20230518
  Receipt Date: 20230518
  Transmission Date: 20230721
  Serious: Yes (Other)
  Sender: FDA-Public Use
  Company Number: US-ABBVIE-4770591

PATIENT
  Sex: Female

DRUGS (2)
  1. SKYRIZI [Suspect]
     Active Substance: RISANKIZUMAB-RZAA
     Indication: Crohn^s disease
     Dosage: SKYRIZI 360 MG/2.4 ML ON-BODY INJ/CART INJECT 360 MG UNDER THE SKIN EVERY 8 WEEKS, LAST ADMIN DAT...
     Route: 058
     Dates: start: 20230224
  2. SKYRIZI [Suspect]
     Active Substance: RISANKIZUMAB-RZAA
     Dosage: SKYRIZI 360 MG/2.4 ML ON-BODY INJ/CART INJECT 360 MG UNDER THE SKIN EVERY 8 WEEKS,, FIRST ADMIN D...
     Route: 058

REACTIONS (2)
  - Intestinal resection [Unknown]
  - Drug ineffective [Not Recovered/Not Resolved]
